FAERS Safety Report 19929055 (Version 2)
Quarter: 2025Q3

REPORT INFORMATION
  Report Type: Spontaneous
  Country: US (occurrence: US)
  Receive Date: 20211007
  Receipt Date: 20250714
  Transmission Date: 20251021
  Serious: No
  Sender: RECORDATI
  Company Number: US-RECORDATI RARE DISEASES-US-R13005-20-00097

PATIENT
  Sex: Female

DRUGS (2)
  1. PANHEMATIN [Suspect]
     Active Substance: HEMIN
     Indication: Porphyria acute
     Route: 042
  2. PANHEMATIN [Suspect]
     Active Substance: HEMIN

REACTIONS (3)
  - Vascular device occlusion [Recovered/Resolved]
  - Vascular device occlusion [Unknown]
  - Therapeutic product effect decreased [Recovered/Resolved]
